FAERS Safety Report 13577815 (Version 1)
Quarter: 2017Q2

REPORT INFORMATION
  Report Type: Spontaneous
  Country: CN (occurrence: CN)
  Receive Date: 20170524
  Receipt Date: 20170524
  Transmission Date: 20170830
  Serious: Yes (Hospitalization)
  Sender: FDA-Public Use
  Company Number: CN-SA-2017SA090356

PATIENT
  Age: 63 Year
  Sex: Female
  Weight: 60 kg

DRUGS (6)
  1. GLUCOSE INJECTION [Suspect]
     Active Substance: DEXTROSE
     Route: 041
     Dates: start: 20170219, end: 20170224
  2. LIPITOR [Concomitant]
     Active Substance: ATORVASTATIN CALCIUM
     Indication: HYPERLIPIDAEMIA
     Route: 048
     Dates: start: 20170219, end: 20170224
  3. PLAVIX [Suspect]
     Active Substance: CLOPIDOGREL BISULFATE
     Indication: PLATELET AGGREGATION INHIBITION
     Route: 048
     Dates: start: 20170216, end: 20170224
  4. LV DING FANG [Suspect]
     Active Substance: LEVOCARNITINE
     Indication: CARNITINE DEFICIENCY
     Route: 041
     Dates: start: 20170217, end: 20170224
  5. SODIUM CHLORIDE INJECTION [Suspect]
     Active Substance: SODIUM CHLORIDE
     Route: 041
     Dates: start: 20170217, end: 20170224
  6. SOFREN [Suspect]
     Active Substance: DICLOFENAC SODIUM
     Indication: PROMOTION OF PERIPHERAL CIRCULATION
     Route: 041
     Dates: start: 20170219, end: 20170224

REACTIONS (1)
  - Liver injury [Recovering/Resolving]

NARRATIVE: CASE EVENT DATE: 20170224
